FAERS Safety Report 6120268-3 (Version None)
Quarter: 2009Q1

REPORT INFORMATION
  Report Type: 
  Country: None (occurrence: None)
  Receive Date: 20090312
  Receipt Date: 20090227
  Transmission Date: 20090719
  Serious: Yes (Other)
  Sender: FDA-Public Use
  Company Number: 8043628

PATIENT
  Age: 26 Year
  Sex: Female

DRUGS (1)
  1. KEPPRA [Suspect]
     Dosage: NI
     Dates: start: 20070101

REACTIONS (2)
  - BIOPSY KIDNEY ABNORMAL [None]
  - RENAL FAILURE [None]
